FAERS Safety Report 19611042 (Version 1)
Quarter: 2021Q3

REPORT INFORMATION
  Report Type: Spontaneous
  Country: US (occurrence: US)
  Receive Date: 20210726
  Receipt Date: 20210726
  Transmission Date: 20211014
  Serious: Yes (Other)
  Sender: FDA-Public Use
  Company Number: US-JNJFOC-20210737753

PATIENT
  Sex: Male

DRUGS (1)
  1. RYBREVANT [Suspect]
     Active Substance: AMIVANTAMAB-VMJW
     Indication: LUNG NEOPLASM MALIGNANT
     Route: 042

REACTIONS (2)
  - Rash [Unknown]
  - Skin haemorrhage [Unknown]
